FAERS Safety Report 11221236 (Version 1)
Quarter: 2015Q2

REPORT INFORMATION
  Report Type: Spontaneous
  Country: PR (occurrence: PR)
  Receive Date: 20150626
  Receipt Date: 20150626
  Transmission Date: 20150821
  Serious: No
  Sender: FDA-Public Use
  Company Number: PR-BIOGENIDEC-2015BI087483

PATIENT
  Age: 39 Year
  Sex: Female
  Weight: 56 kg

DRUGS (2)
  1. TECFIDERA [Suspect]
     Active Substance: DIMETHYL FUMARATE
     Indication: MULTIPLE SCLEROSIS
     Route: 048
     Dates: start: 201404, end: 201404
  2. TECFIDERA [Suspect]
     Active Substance: DIMETHYL FUMARATE
     Indication: MULTIPLE SCLEROSIS
     Route: 048
     Dates: start: 201404

REACTIONS (1)
  - Somnolence [Not Recovered/Not Resolved]

NARRATIVE: CASE EVENT DATE: 201506
